FAERS Safety Report 24332400 (Version 2)
Quarter: 2024Q3

REPORT INFORMATION
  Report Type: Spontaneous
  Country: DK (occurrence: DK)
  Receive Date: 20240918
  Receipt Date: 20240924
  Transmission Date: 20241017
  Serious: Yes (Hospitalization, Disabling, Other)
  Sender: SANDOZ
  Company Number: None

PATIENT
  Sex: Female

DRUGS (2)
  1. METHOTREXATE [Suspect]
     Active Substance: METHOTREXATE
     Indication: Rheumatoid arthritis
     Dosage: 10 MG, QW
     Route: 058
  2. TAMOXIFEN [Concomitant]
     Active Substance: TAMOXIFEN
     Indication: Product used for unknown indication
     Dosage: UNK
     Route: 065

REACTIONS (9)
  - Foot fracture [Recovered/Resolved]
  - Ankle fracture [Recovered/Resolved]
  - Tibia fracture [Recovered/Resolved]
  - Fibula fracture [Recovered/Resolved]
  - Wrist fracture [Recovered/Resolved]
  - Osteoporosis [Recovered/Resolved]
  - Stress fracture [Recovered/Resolved]
  - Bone disorder [Recovering/Resolving]
  - Atypical fracture [Recovering/Resolving]

NARRATIVE: CASE EVENT DATE: 20180101
